FAERS Safety Report 16238338 (Version 1)
Quarter: 2019Q2

REPORT INFORMATION
  Report Type: Spontaneous
  Country: NL (occurrence: NL)
  Receive Date: 20190425
  Receipt Date: 20190425
  Transmission Date: 20190711
  Serious: Yes (Hospitalization)
  Sender: FDA-Public Use
  Company Number: PHHY2019NL093330

PATIENT
  Age: 67 Year
  Sex: Female

DRUGS (3)
  1. NORTRIPTYLINE [Concomitant]
     Active Substance: NORTRIPTYLINE
     Indication: PRODUCT USED FOR UNKNOWN INDICATION
     Route: 065
  2. AMITRIPTYLINE [Suspect]
     Active Substance: AMITRIPTYLINE
     Indication: PRODUCT USED FOR UNKNOWN INDICATION
     Route: 065
  3. MIDAZOLAM [Concomitant]
     Active Substance: MIDAZOLAM HYDROCHLORIDE
     Indication: SEDATIVE THERAPY
     Route: 065

REACTIONS (13)
  - Mydriasis [Unknown]
  - Loss of consciousness [Unknown]
  - Hypotension [Unknown]
  - Tachycardia [Unknown]
  - Electrocardiogram PQ interval prolonged [Unknown]
  - Toxicity to various agents [Unknown]
  - Seizure [Unknown]
  - Reflexes abnormal [Recovering/Resolving]
  - Vomiting [Unknown]
  - Oculocephalogyric reflex absent [Recovering/Resolving]
  - Confusional state [Unknown]
  - Corneal reflex decreased [Recovering/Resolving]
  - Electrocardiogram QRS complex abnormal [Unknown]
